FAERS Safety Report 20434627 (Version 2)
Quarter: 2022Q1

REPORT INFORMATION
  Report Type: Spontaneous
  Country: US (occurrence: US)
  Receive Date: 20220206
  Receipt Date: 20220211
  Transmission Date: 20220424
  Serious: No
  Sender: FDA-Public Use
  Company Number: US-NOVARTISTESTPH-NVSC2022US025078

PATIENT
  Sex: Female

DRUGS (2)
  1. VOTRIENT [Suspect]
     Active Substance: PAZOPANIB HYDROCHLORIDE
     Indication: Bone cancer
     Dosage: 600 MG, QD
     Route: 048
     Dates: start: 202110
  2. HYCAMTIN [Suspect]
     Active Substance: TOPOTECAN HYDROCHLORIDE
     Indication: Bone cancer
     Dosage: 4 MG (7 DAYS FOR 3 WEEKS ON AND 1 WEEK OFF)
     Route: 048
     Dates: start: 202110

REACTIONS (1)
  - Nausea [Unknown]
